FAERS Safety Report 11363875 (Version 1)
Quarter: 2015Q3

REPORT INFORMATION
  Report Type: Spontaneous
  Country: US (occurrence: None)
  Receive Date: 20150810
  Receipt Date: 20150810
  Transmission Date: 20151125
  Serious: No
  Sender: FDA-Public Use
  Company Number: None

PATIENT
  Age: 4 Year
  Sex: Female
  Weight: 19.96 kg

DRUGS (3)
  1. MONTELUKAST 4MG [Suspect]
     Active Substance: MONTELUKAST SODIUM
     Indication: MULTIPLE ALLERGIES
     Dates: start: 20130201, end: 20150807
  2. FLINTSTONE VITAMINS [Concomitant]
  3. QUVAR PRO AIR [Concomitant]

REACTIONS (2)
  - Fear [None]
  - Hallucination, visual [None]

NARRATIVE: CASE EVENT DATE: 20150807
